FAERS Safety Report 11907350 (Version 3)
Quarter: 2016Q1

REPORT INFORMATION
  Report Type: Report from Study
  Country: US (occurrence: US)
  Receive Date: 20160111
  Receipt Date: 20160111
  Transmission Date: 20160526
  Serious: No
  Sender: FDA-Public Use
  Company Number: US-ABBVIE-15P-163-1489018-00

PATIENT
  Sex: Male
  Weight: 79 kg

DRUGS (1)
  1. VIEKIRA PAK [Suspect]
     Active Substance: DASABUVIR\OMBITASVIR\PARITAPREVIR\RITONAVIR
     Indication: HEPATITIS C
     Dosage: IN THE MORNING AND EVENING, PER MANUFACTURER PACKAGE DIRECTION
     Route: 048
     Dates: start: 20150922

REACTIONS (6)
  - Decreased appetite [Unknown]
  - Insomnia [Unknown]
  - Diarrhoea [Unknown]
  - Fatigue [Unknown]
  - Incorrect dose administered [Unknown]
  - Nausea [Unknown]
